FAERS Safety Report 8591505-0 (Version None)
Quarter: 2012Q3

REPORT INFORMATION
  Report Type: 
  Country: None (occurrence: None)
  Receive Date: 20120814
  Receipt Date: 20120807
  Transmission Date: 20120928
  Serious: Yes (Other)
  Sender: FDA-Public Use
  Company Number: US-SANOFI-AVENTIS-2012SA056725

PATIENT
  Age: 66 Year
  Sex: Female

DRUGS (4)
  1. LANTUS [Suspect]
     Dosage: DOSE:55 UNIT(S)
     Route: 058
  2. SOLOSTAR [Suspect]
  3. LANTUS [Suspect]
     Dosage: DOSE:55 UNIT(S)
     Route: 058
  4. SOLOSTAR [Suspect]

REACTIONS (1)
  - MYOCARDIAL INFARCTION [None]
